FAERS Safety Report 11010771 (Version 2)
Quarter: 2015Q2

REPORT INFORMATION
  Report Type: Spontaneous
  Country: US (occurrence: US)
  Receive Date: 20150410
  Receipt Date: 20150420
  Transmission Date: 20150821
  Serious: Yes (Death, Hospitalization, Other)
  Sender: FDA-Public Use
  Company Number: US-BAXTER-2015BAX019190

PATIENT
  Sex: Female

DRUGS (1)
  1. DIANEAL LOW CALCIUM PERITONEAL DIALYSIS SOLUTION WITH DEXTROSE [Suspect]
     Active Substance: CALCIUM CHLORIDE\DEXTROSE\MAGNESIUM CHLORIDE\SODIUM CHLORIDE\SODIUM LACTATE
     Indication: PERITONEAL DIALYSIS
     Route: 033
     Dates: end: 201503

REACTIONS (5)
  - Peritonitis bacterial [Recovering/Resolving]
  - Peritoneal dialysis complication [Recovered/Resolved]
  - Hypotension [Recovering/Resolving]
  - Fungal peritonitis [Fatal]
  - Asthenia [Recovering/Resolving]

NARRATIVE: CASE EVENT DATE: 201501
